FAERS Safety Report 18224784 (Version 1)
Quarter: 2020Q3

REPORT INFORMATION
  Report Type: Spontaneous
  Country: US (occurrence: US)
  Receive Date: 20200902
  Receipt Date: 20200902
  Transmission Date: 20201103
  Serious: No
  Sender: FDA-Public Use
  Company Number: US-VELOXIS PHARMACEUTICALS-2020VELUS-000104

PATIENT
  Sex: Male

DRUGS (10)
  1. ENVARSUS XR [Suspect]
     Active Substance: TACROLIMUS
     Indication: PROPHYLAXIS AGAINST TRANSPLANT REJECTION
     Dosage: 5 TABLETS
  2. ENVARSUS XR [Suspect]
     Active Substance: TACROLIMUS
     Dosage: BETWEEN 4?5 MG
     Route: 048
  3. ENVARSUS XR [Suspect]
     Active Substance: TACROLIMUS
     Dosage: Q2WK
  4. ENVARSUS XR [Suspect]
     Active Substance: TACROLIMUS
     Dosage: 6 TABLETS OR 4 TABLETS
  5. ENVARSUS XR [Suspect]
     Active Substance: TACROLIMUS
     Dosage: Q3WK
  6. ENVARSUS XR [Suspect]
     Active Substance: TACROLIMUS
     Dosage: 6 MG
     Route: 048
  7. ENVARSUS XR [Suspect]
     Active Substance: TACROLIMUS
     Dosage: QWK
  8. ENVARSUS XR [Suspect]
     Active Substance: TACROLIMUS
     Dosage: 5 MG
     Route: 048
     Dates: start: 20191217
  9. ENVARSUS XR [Suspect]
     Active Substance: TACROLIMUS
     Dosage: 5 MG
     Route: 048
  10. ENVARSUS XR [Suspect]
     Active Substance: TACROLIMUS
     Dosage: 4 MG
     Route: 048

REACTIONS (2)
  - Drug level increased [Unknown]
  - Product administration error [Unknown]
